FAERS Safety Report 9693459 (Version 1)
Quarter: 2013Q4

REPORT INFORMATION
  Report Type: Spontaneous
  Country: CH (occurrence: CH)
  Receive Date: 20131118
  Receipt Date: 20131118
  Transmission Date: 20140711
  Serious: Yes (Other)
  Sender: FDA-Public Use
  Company Number: CH-PFIZER INC-2013324875

PATIENT
  Age: 47 Year
  Sex: Female

DRUGS (8)
  1. EFEXOR ER [Suspect]
     Indication: BIPOLAR I DISORDER
     Dosage: 225 MG, 1X/DAY
     Route: 048
  2. TEMESTA [Interacting]
     Indication: BIPOLAR I DISORDER
     Dosage: 1 MG, AS NEEDED
     Route: 048
  3. PRIADEL - SLOW RELEASE [Interacting]
     Indication: BIPOLAR I DISORDER
     Dosage: 600 MG, 2X/DAY (GRADUALLY INCREASED TO 1200MG / 32.4 MMOL/DAY)
     Route: 048
     Dates: start: 201304, end: 20130813
  4. PRIADEL - SLOW RELEASE [Interacting]
     Dosage: 100 MG, DAILY
     Route: 048
     Dates: start: 20130814, end: 20130827
  5. PRIADEL - SLOW RELEASE [Interacting]
     Dosage: 800 MG, DAILY
     Route: 048
     Dates: start: 20130828, end: 20130904
  6. PRIADEL - SLOW RELEASE [Interacting]
     Dosage: 600 MG, DAILY
     Route: 048
     Dates: start: 20130905
  7. TRITTICO [Interacting]
     Indication: BIPOLAR I DISORDER
     Dosage: 100 MG, 1X/DAY
     Route: 048
  8. LAMICTAL [Interacting]
     Indication: BIPOLAR I DISORDER
     Dosage: 150 MG, 1X/DAY
     Route: 048

REACTIONS (3)
  - Off label use [Unknown]
  - Drug interaction [Recovered/Resolved]
  - Dissociative fugue [Recovered/Resolved]
